FAERS Safety Report 10272490 (Version 1)
Quarter: 2014Q2

REPORT INFORMATION
  Report Type: Spontaneous
  Country: US (occurrence: None)
  Receive Date: 20140630
  Receipt Date: 20140630
  Transmission Date: 20141212
  Serious: Yes (Other)
  Sender: FDA-Public Use
  Company Number: None

PATIENT
  Age: 39 Year
  Sex: Female
  Weight: 86.18 kg

DRUGS (14)
  1. SERTRALINE HCL [Suspect]
     Indication: ANXIETY
     Route: 048
     Dates: start: 20140604, end: 20140605
  2. SERTRALINE HCL [Suspect]
     Indication: PANIC ATTACK
     Route: 048
     Dates: start: 20140604, end: 20140605
  3. SERTRALINE HCL [Suspect]
     Indication: POST-TRAUMATIC STRESS DISORDER
     Route: 048
     Dates: start: 20140604, end: 20140605
  4. JANUVIA [Concomitant]
  5. METFORMIN [Concomitant]
  6. RAMIPRIL GLUCOSE METER [Concomitant]
  7. VISTARIL [Concomitant]
  8. CELEXA [Concomitant]
  9. CPAP (SYSTEM ONE) [Concomitant]
  10. MULTI VITAMIN [Concomitant]
  11. VITAMIN B-6 [Concomitant]
  12. VITAMIN B-12 [Concomitant]
  13. VITAMIN C [Concomitant]
  14. VITAMIN E [Concomitant]

REACTIONS (12)
  - Blood pressure increased [None]
  - Palpitations [None]
  - Dizziness [None]
  - Nervousness [None]
  - Tremor [None]
  - Tremor [None]
  - Crying [None]
  - Peripheral coldness [None]
  - Paranoia [None]
  - Dyspnoea [None]
  - Fear [None]
  - Feeling abnormal [None]
